FAERS Safety Report 12855870 (Version 1)
Quarter: 2016Q4

REPORT INFORMATION
  Report Type: Spontaneous
  Country: DK (occurrence: None)
  Receive Date: 20161014
  Receipt Date: 20161014
  Transmission Date: 20170207
  Serious: Yes (Hospitalization)
  Sender: FDA-Public Use
  Company Number: DK2016K3978SPO

PATIENT
  Age: 50 Year
  Sex: Female
  Weight: 60 kg

DRUGS (2)
  1. ENALAPRIL KRKA (ENALAPRIL) TABLET [Suspect]
     Active Substance: ENALAPRIL
     Indication: HYPERTENSION
     Dosage: 5 MG 1X PER DAY ORAL
     Route: 048
     Dates: start: 2005, end: 2015
  2. CITALOPRAM ORION (CITALOPRAMHYDROBROMID) [Concomitant]

REACTIONS (2)
  - Gastrointestinal mucosal disorder [None]
  - Gastrointestinal pain [None]

NARRATIVE: CASE EVENT DATE: 2006
